FAERS Safety Report 4667039-2 (Version None)
Quarter: 2005Q2

REPORT INFORMATION
  Report Type: 
  Country: None (occurrence: None)
  Receive Date: 20050520
  Receipt Date: 20040805
  Transmission Date: 20051028
  Serious: Yes (Other)
  Sender: FDA-Public Use
  Company Number: PHEH2004US08601

PATIENT
  Age: 73 Year
  Sex: Female

DRUGS (5)
  1. GEMZAR [Concomitant]
     Indication: BREAST CANCER
     Dosage: 10000 MG/M2, QW
     Dates: start: 20020101, end: 20020301
  2. NAVELBINE [Concomitant]
     Dosage: 30 MG/M2, QW
     Dates: start: 20020401, end: 20030301
  3. NAVELBINE [Concomitant]
     Dosage: 30 MG/M2, QW
     Dates: start: 20030901, end: 20040401
  4. CARBOPLATIN [Concomitant]
     Indication: BREAST CANCER
     Dosage: 260 MG, Q21DAYS
     Dates: start: 20040401, end: 20041101
  5. AREDIA [Suspect]
     Indication: BREAST CANCER METASTATIC
     Dosage: 90 MG, QMO
     Dates: start: 20000417, end: 20040715

REACTIONS (6)
  - FISTULA [None]
  - INFLAMMATION [None]
  - JAW DISORDER [None]
  - OSTEONECROSIS [None]
  - PRIMARY SEQUESTRUM [None]
  - SINUSITIS [None]
